FAERS Safety Report 5875722-6 (Version None)
Quarter: 2008Q3

REPORT INFORMATION
  Report Type: 
  Country: None (occurrence: None)
  Receive Date: 20080909
  Receipt Date: 20080903
  Transmission Date: 20090109
  Serious: Yes (Other)
  Sender: FDA-Public Use
  Company Number: CH-ABBOTT-08P-151-0471442-00

PATIENT
  Age: 39 Year
  Sex: Female

DRUGS (2)
  1. HUMIRA [Suspect]
     Indication: RHEUMATOID ARTHRITIS
     Dates: start: 20080801
  2. TRIPLE THERAPY [Concomitant]
     Indication: RHEUMATOID ARTHRITIS

REACTIONS (5)
  - CHEST PAIN [None]
  - HYPERTENSION [None]
  - PALLOR [None]
  - PALPITATIONS [None]
  - PRESYNCOPE [None]
